FAERS Safety Report 5777433-4 (Version None)
Quarter: 2008Q2

REPORT INFORMATION
  Report Type: 
  Country: None (occurrence: None)
  Receive Date: 20080618
  Receipt Date: 20080616
  Transmission Date: 20081010
  Serious: Yes (Hospitalization, Other)
  Sender: FDA-Public Use
  Company Number: SE-RB-001962-08

PATIENT
  Age: 40 Year
  Sex: Male

DRUGS (1)
  1. SUBUTEX [Suspect]
     Dosage: UNKNOWN DOSE.
     Route: 060

REACTIONS (4)
  - DIABETES MELLITUS [None]
  - FOOD CRAVING [None]
  - THIRST [None]
  - WEIGHT DECREASED [None]
